FAERS Safety Report 14050003 (Version 2)
Quarter: 2017Q4

REPORT INFORMATION
  Report Type: Spontaneous
  Country: GB (occurrence: GB)
  Receive Date: 20171005
  Receipt Date: 20171018
  Transmission Date: 20180321
  Serious: Yes (Other)
  Sender: FDA-Public Use
  Company Number: PHHY2017GB141439

PATIENT
  Sex: Female

DRUGS (1)
  1. SIGNIFOR [Suspect]
     Active Substance: PASIREOTIDE
     Indication: PITUITARY-DEPENDENT CUSHING^S SYNDROME
     Dosage: FOR LAST 3-4 YEARS (NOT SURE EXACTLY)
     Route: 065

REACTIONS (2)
  - Therapeutic response unexpected [Unknown]
  - Pituitary-dependent Cushing^s syndrome [Unknown]
